FAERS Safety Report 9628567 (Version 1)
Quarter: 2013Q4

REPORT INFORMATION
  Report Type: Report from Study
  Country: US (occurrence: US)
  Receive Date: 20131017
  Receipt Date: 20131017
  Transmission Date: 20140711
  Serious: Yes (Other)
  Sender: FDA-Public Use
  Company Number: US-ROCHE-1288814

PATIENT
  Sex: 0
  Weight: 69 kg

DRUGS (93)
  1. AVASTIN [Suspect]
     Indication: COLON CANCER
     Route: 065
     Dates: start: 20081215, end: 20081215
  2. AVASTIN [Suspect]
     Route: 065
     Dates: start: 20081229, end: 20081229
  3. AVASTIN [Suspect]
     Route: 065
     Dates: start: 20090112, end: 20090112
  4. AVASTIN [Suspect]
     Route: 065
     Dates: start: 20090214, end: 20090214
  5. AVASTIN [Suspect]
     Route: 065
     Dates: start: 20090302, end: 20090302
  6. AVASTIN [Suspect]
     Route: 065
     Dates: start: 20090316, end: 20090316
  7. AVASTIN [Suspect]
     Route: 065
     Dates: start: 20090413, end: 20090413
  8. AVASTIN [Suspect]
     Route: 065
     Dates: start: 20090427, end: 20090427
  9. AVASTIN [Suspect]
     Route: 065
     Dates: start: 20090511, end: 20090511
  10. AVASTIN [Suspect]
     Route: 065
     Dates: start: 20090601, end: 20090601
  11. AVASTIN [Suspect]
     Route: 065
     Dates: start: 20090615, end: 20090615
  12. AVASTIN [Suspect]
     Route: 065
     Dates: start: 20090629, end: 20090629
  13. AVASTIN [Suspect]
     Route: 065
     Dates: start: 20090727, end: 20090727
  14. AVASTIN [Suspect]
     Route: 065
     Dates: start: 20090810, end: 20090810
  15. AVASTIN [Suspect]
     Route: 065
     Dates: start: 20090824, end: 20090824
  16. AVASTIN [Suspect]
     Route: 065
     Dates: start: 20090914, end: 20090914
  17. AVASTIN [Suspect]
     Route: 065
     Dates: start: 20090928, end: 20090928
  18. AVASTIN [Suspect]
     Route: 065
     Dates: start: 20091012, end: 20091012
  19. AVASTIN [Suspect]
     Route: 065
     Dates: start: 20091109, end: 20091109
  20. AVASTIN [Suspect]
     Route: 065
     Dates: start: 20091123, end: 20091123
  21. AVASTIN [Suspect]
     Route: 065
     Dates: start: 20091207, end: 20091207
  22. AVASTIN [Suspect]
     Route: 065
     Dates: start: 20100104, end: 20100104
  23. AVASTIN [Suspect]
     Route: 065
     Dates: start: 20100118, end: 20100118
  24. AVASTIN [Suspect]
     Route: 065
     Dates: start: 20100201, end: 20100201
  25. AVASTIN [Suspect]
     Route: 065
     Dates: start: 20100301, end: 20100301
  26. AVASTIN [Suspect]
     Route: 065
     Dates: start: 20100315, end: 20100315
  27. AVASTIN [Suspect]
     Route: 065
     Dates: start: 20100329, end: 20100329
  28. AVASTIN [Suspect]
     Route: 065
     Dates: start: 20100510, end: 20100510
  29. AVASTIN [Suspect]
     Route: 065
     Dates: start: 20100524, end: 20100524
  30. AVASTIN [Suspect]
     Route: 065
     Dates: start: 20100603, end: 20100603
  31. AVASTIN [Suspect]
     Route: 065
     Dates: start: 20100804, end: 20100804
  32. AVASTIN [Suspect]
     Route: 065
     Dates: start: 20100908, end: 20100908
  33. AVASTIN [Suspect]
     Route: 065
     Dates: start: 20100922, end: 20100922
  34. AVASTIN [Suspect]
     Route: 065
     Dates: start: 20101020, end: 20101020
  35. AVASTIN [Suspect]
     Route: 042
     Dates: start: 20101117, end: 20101117
  36. AVASTIN [Suspect]
     Route: 042
     Dates: start: 20101223, end: 20101223
  37. AVASTIN [Suspect]
     Route: 065
     Dates: start: 20110110, end: 20110110
  38. AVASTIN [Suspect]
     Route: 042
     Dates: start: 20110124, end: 20110124
  39. AVASTIN [Suspect]
     Route: 042
     Dates: start: 20110207, end: 20110207
  40. AVASTIN [Suspect]
     Route: 065
     Dates: start: 20110321, end: 20110321
  41. AVASTIN [Suspect]
     Route: 042
     Dates: start: 20110404, end: 20110404
  42. AVASTIN [Suspect]
     Route: 042
     Dates: start: 20110425, end: 20110425
  43. AVASTIN [Suspect]
     Route: 065
     Dates: start: 20101201, end: 20101201
  44. DEXAMETHASONE [Concomitant]
     Route: 042
     Dates: start: 20101117, end: 20101117
  45. DEXAMETHASONE [Concomitant]
     Route: 042
     Dates: start: 20101201, end: 20101201
  46. DEXAMETHASONE [Concomitant]
     Route: 042
     Dates: start: 20110110, end: 20110110
  47. DEXAMETHASONE [Concomitant]
     Route: 042
     Dates: start: 20110124, end: 20110124
  48. DEXAMETHASONE [Concomitant]
     Route: 042
     Dates: start: 20110207, end: 20110207
  49. DEXAMETHASONE [Concomitant]
     Route: 042
     Dates: start: 20110425, end: 20110425
  50. ONDANSETRON [Concomitant]
     Route: 042
     Dates: start: 20101117, end: 20101117
  51. ONDANSETRON [Concomitant]
     Route: 042
     Dates: start: 20101201, end: 20101201
  52. ONDANSETRON [Concomitant]
     Route: 042
     Dates: start: 20110110, end: 20110110
  53. ONDANSETRON [Concomitant]
     Route: 042
     Dates: start: 20110124, end: 20110124
  54. ONDANSETRON [Concomitant]
     Route: 042
     Dates: start: 20110207, end: 20110207
  55. LEUCOVORIN [Concomitant]
     Route: 042
     Dates: start: 20101117, end: 20101117
  56. LEUCOVORIN [Concomitant]
     Route: 065
     Dates: start: 20101201, end: 20101201
  57. LEUCOVORIN [Concomitant]
     Route: 042
     Dates: start: 20101223, end: 20101223
  58. LEUCOVORIN [Concomitant]
     Route: 065
     Dates: start: 20110110, end: 20110110
  59. LEUCOVORIN [Concomitant]
     Route: 042
     Dates: start: 20110124, end: 20110124
  60. LEUCOVORIN [Concomitant]
     Route: 065
     Dates: start: 20110324, end: 20110324
  61. LEUCOVORIN [Concomitant]
     Route: 042
     Dates: start: 20110404, end: 20110404
  62. IRINOTECAN [Concomitant]
     Route: 065
     Dates: start: 20101117, end: 20101117
  63. IRINOTECAN [Concomitant]
     Route: 065
     Dates: start: 20101201, end: 20101201
  64. IRINOTECAN [Concomitant]
     Route: 042
     Dates: start: 20101223, end: 20101223
  65. IRINOTECAN [Concomitant]
     Route: 042
     Dates: start: 20110110, end: 20110110
  66. IRINOTECAN [Concomitant]
     Route: 042
     Dates: start: 20110124, end: 20110124
  67. IRINOTECAN [Concomitant]
     Route: 042
     Dates: start: 20110207, end: 20110207
  68. IRINOTECAN [Concomitant]
     Route: 065
     Dates: start: 20110324, end: 20110324
  69. IRINOTECAN [Concomitant]
     Route: 042
     Dates: start: 20110404, end: 20110404
  70. IRINOTECAN [Concomitant]
     Route: 042
     Dates: start: 20110425, end: 20110425
  71. 5-FU [Concomitant]
     Route: 042
     Dates: start: 20101117, end: 20101117
  72. 5-FU [Concomitant]
     Route: 042
     Dates: start: 20101201, end: 20101201
  73. 5-FU [Concomitant]
     Dosage: OVER 46 HOURS
     Route: 065
     Dates: start: 20101201, end: 20101201
  74. 5-FU [Concomitant]
     Route: 042
     Dates: start: 20101223, end: 20101223
  75. 5-FU [Concomitant]
     Route: 065
     Dates: start: 20101223, end: 20101223
  76. 5-FU [Concomitant]
     Route: 065
     Dates: start: 20110110, end: 20110110
  77. 5-FU [Concomitant]
     Route: 065
     Dates: start: 20110110, end: 20110110
  78. 5-FU [Concomitant]
     Route: 042
     Dates: start: 20110124, end: 20110124
  79. 5-FU [Concomitant]
     Route: 065
     Dates: start: 20110124, end: 20110124
  80. 5-FU [Concomitant]
     Route: 065
     Dates: start: 20110207, end: 20110207
  81. 5-FU [Concomitant]
     Route: 065
     Dates: start: 20110207, end: 20110207
  82. 5-FU [Concomitant]
     Route: 065
     Dates: start: 20110324, end: 20110324
  83. 5-FU [Concomitant]
     Route: 065
     Dates: start: 20110324, end: 20110324
  84. 5-FU [Concomitant]
     Route: 042
     Dates: start: 20110404, end: 20110404
  85. 5-FU [Concomitant]
     Route: 042
     Dates: start: 20110404, end: 20110404
  86. 5-FU [Concomitant]
     Route: 042
     Dates: start: 20110425, end: 20110425
  87. 5-FU [Concomitant]
     Route: 042
     Dates: start: 20110425, end: 20110425
  88. ATROPINE [Concomitant]
     Route: 042
     Dates: start: 20101117
  89. ATROPINE [Concomitant]
     Route: 042
     Dates: start: 20101223, end: 20101223
  90. ATROPINE [Concomitant]
     Route: 042
     Dates: start: 20110110, end: 20110110
  91. ATROPINE [Concomitant]
     Route: 042
     Dates: start: 20110124, end: 20110124
  92. LORAZEPAM [Concomitant]
     Route: 042
     Dates: start: 20101223, end: 20101223
  93. LORAZEPAM [Concomitant]
     Route: 048
     Dates: start: 20110110, end: 20110110

REACTIONS (5)
  - Eye irritation [Unknown]
  - Pyrexia [Unknown]
  - Throat irritation [Unknown]
  - Blood potassium abnormal [Unknown]
  - Throat irritation [Unknown]
